FAERS Safety Report 13750044 (Version 1)
Quarter: 2017Q3

REPORT INFORMATION
  Report Type: Spontaneous
  Country: US (occurrence: US)
  Receive Date: 20170713
  Receipt Date: 20170713
  Transmission Date: 20171127
  Serious: No
  Sender: FDA-Public Use
  Company Number: US-ASTELLAS-2016US048004

PATIENT
  Sex: Female

DRUGS (3)
  1. TRADJENTA [Concomitant]
     Active Substance: LINAGLIPTIN
     Indication: PRODUCT USED FOR UNKNOWN INDICATION
     Dosage: UNK UNK, UNKNOWN FREQ.
     Route: 065
  2. HYDROCHLOROTHIAZIDE. [Concomitant]
     Active Substance: HYDROCHLOROTHIAZIDE
     Indication: PRODUCT USED FOR UNKNOWN INDICATION
     Dosage: UNK UNK, UNKNOWN FREQ.
     Route: 065
  3. MYRBETRIQ [Suspect]
     Active Substance: MIRABEGRON
     Indication: PRODUCT USED FOR UNKNOWN INDICATION
     Route: 065
     Dates: start: 201606

REACTIONS (11)
  - Paranasal sinus hypersecretion [Unknown]
  - Periorbital oedema [Recovering/Resolving]
  - Lacrimation increased [Recovered/Resolved]
  - Meibomian gland dysfunction [Recovered/Resolved]
  - Intentional product misuse [Unknown]
  - Drug effect incomplete [Unknown]
  - Rhinorrhoea [Unknown]
  - Ocular hyperaemia [Unknown]
  - Vision blurred [Recovered/Resolved]
  - Eye pain [Unknown]
  - Visual impairment [Unknown]
